FAERS Safety Report 6517573-5 (Version None)
Quarter: 2009Q4

REPORT INFORMATION
  Report Type: 
  Country: None (occurrence: None)
  Receive Date: 20091224
  Receipt Date: 20091217
  Transmission Date: 20100525
  Serious: Yes (Hospitalization)
  Sender: FDA-Public Use
  Company Number: DK-ROCHE-675554

PATIENT
  Sex: Female

DRUGS (3)
  1. TAMIFLU [Suspect]
     Indication: INFLUENZA
     Route: 048
     Dates: start: 20091214, end: 20091215
  2. VENTOLIN [Concomitant]
     Indication: ASTHMA
     Dosage: START DATE REPORTED AS 01 JANUARY 1970
     Route: 055
     Dates: start: 19700101
  3. FLIXOTIDE [Concomitant]
     Indication: ASTHMA
     Route: 055
     Dates: start: 19700101

REACTIONS (4)
  - CIRCUMORAL OEDEMA [None]
  - DYSPNOEA [None]
  - FACE OEDEMA [None]
  - PEAK EXPIRATORY FLOW RATE DECREASED [None]
